FAERS Safety Report 5932509-3 (Version None)
Quarter: 2008Q4

REPORT INFORMATION
  Report Type: 
  Country: None (occurrence: None)
  Receive Date: 20081009
  Receipt Date: 20080218
  Transmission Date: 20090506
  Serious: Yes (Other)
  Sender: FDA-Public Use
  Company Number: PHEH2007US13444

PATIENT
  Age: 49 Year
  Sex: Male

DRUGS (6)
  1. ZOMETA [Suspect]
     Indication: METASTASES TO BONE
     Dosage: 4 MG, ONCE MONTHLY, INTRAVENOUS
     Route: 042
     Dates: start: 20061222, end: 20070416
  2. DEXAMETHASONE TAB [Concomitant]
  3. AVASTIN [Concomitant]
  4. TAXOTERE [Concomitant]
  5. CARBOPLATIN [Concomitant]
  6. ALIMTA [Concomitant]

REACTIONS (4)
  - ACTINOMYCOSIS [None]
  - IMPAIRED HEALING [None]
  - OSTEONECROSIS [None]
  - PAIN IN JAW [None]
